FAERS Safety Report 7025281-X (Version None)
Quarter: 2010Q4

REPORT INFORMATION
  Report Type: 
  Country: None (occurrence: None)
  Receive Date: 20101001
  Receipt Date: 20100917
  Transmission Date: 20110411
  Serious: Yes (Other)
  Sender: FDA-Public Use
  Company Number: US-ELI_LILLY_AND_COMPANY-US201008005477

PATIENT
  Sex: Male
  Weight: 65.76 kg

DRUGS (7)
  1. ZYPREXA [Suspect]
     Indication: SCHIZOPHRENIA, DISORGANISED TYPE
     Dosage: 30 MG, DAILY (1/D)
     Route: 065
     Dates: start: 20100812
  2. LISINOPRIL [Concomitant]
     Route: 048
  3. ZOLPIDEM [Concomitant]
  4. LORAZEPAM [Concomitant]
  5. PROPRANOLOL [Concomitant]
  6. ARIPIPRAZOLE [Concomitant]
  7. VALPROIC ACID                      /00228502/ [Concomitant]
     Dosage: 500 MG, 3/D
     Route: 048

REACTIONS (2)
  - OVERDOSE [None]
  - PHAEOCHROMOCYTOMA [None]
